FAERS Safety Report 22029620 (Version 1)
Quarter: 2023Q1

REPORT INFORMATION
  Report Type: Spontaneous
  Country: US (occurrence: None)
  Receive Date: 20230221
  Receipt Date: 20230221
  Transmission Date: 20230418
  Serious: Yes (Hospitalization)
  Sender: FDA-Public Use
  Company Number: None

PATIENT
  Age: 79 Year
  Sex: Male
  Weight: 66.22 kg

DRUGS (24)
  1. CAPECITABINE [Suspect]
     Active Substance: CAPECITABINE
     Indication: Gastric cancer
     Dosage: FREQUENCY : TWICE A DAY;?
     Route: 048
  2. AMIODARONE [Concomitant]
  3. ATORVASTATIN [Concomitant]
  4. METFORMIN [Concomitant]
  5. METOPROLOL TARTRATE [Concomitant]
  6. BENEFIBER [Concomitant]
  7. ELIQUIS [Concomitant]
  8. LUTEIN [Concomitant]
     Active Substance: LUTEIN
  9. FERROUS SULFATE [Concomitant]
  10. FLOMAX [Concomitant]
  11. FLOVENT HFA INHALATION [Concomitant]
  12. FLUDROCORTISONE [Concomitant]
  13. GLIPIZIDE [Concomitant]
  14. JARDIANCE [Concomitant]
  15. MIDODRINE [Concomitant]
  16. ONE DAILY MULTIVITAMIN [Concomitant]
  17. PEPCID [Concomitant]
  18. PREDNISONE [Concomitant]
  19. PRESERVISION AREDS [Concomitant]
  20. FISH OIL [Concomitant]
  21. VITAMIN D3 [Concomitant]
  22. TAMSULOSIN [Concomitant]
  23. THEREMS-M [Concomitant]
  24. VITAMIN B12 [Concomitant]

REACTIONS (2)
  - Pneumonia [None]
  - Arrhythmia [None]
